FAERS Safety Report 22036803 (Version 2)
Quarter: 2023Q2

REPORT INFORMATION
  Report Type: Report from Study
  Country: US (occurrence: US)
  Receive Date: 20230225
  Receipt Date: 20230508
  Transmission Date: 20230721
  Serious: Yes (Other)
  Sender: FDA-Public Use
  Company Number: US-002147023-NVSC2023US039508

PATIENT
  Age: 53 Year
  Sex: Female

DRUGS (2)
  1. KESIMPTA [Suspect]
     Active Substance: OFATUMUMAB
     Indication: Multiple sclerosis
     Dosage: 1.2 ML, QW (ONCE A WEEK)
     Route: 030
     Dates: start: 20230201
  2. KESIMPTA [Suspect]
     Active Substance: OFATUMUMAB
     Dosage: 1.2 ML, QW (ONCE A WEEK)
     Route: 030
     Dates: start: 20230216, end: 20230216

REACTIONS (3)
  - Hypersensitivity [Unknown]
  - Dyspnoea [Unknown]
  - Incorrect route of product administration [Unknown]

NARRATIVE: CASE EVENT DATE: 20230201
